FAERS Safety Report 7010829-1 (Version None)
Quarter: 2010Q3

REPORT INFORMATION
  Report Type: 
  Country: None (occurrence: None)
  Receive Date: 20100923
  Receipt Date: 20100923
  Transmission Date: 20110219
  Serious: Yes (Hospitalization)
  Sender: FDA-Public Use
  Company Number: None

PATIENT
  Sex: Female
  Weight: 60.4 kg

DRUGS (2)
  1. CARBOPLATIN [Suspect]
     Dosage: 658 MG
  2. TAXOL [Suspect]
     Dosage: 273 MG

REACTIONS (5)
  - ABDOMINAL PAIN [None]
  - CONSTIPATION [None]
  - DEPRESSION [None]
  - NAUSEA [None]
  - VOMITING [None]
